FAERS Safety Report 6539004-1 (Version None)
Quarter: 2010Q1

REPORT INFORMATION
  Report Type: 
  Country: None (occurrence: None)
  Receive Date: 20100114
  Receipt Date: 20100114
  Transmission Date: 20100710
  Serious: No
  Sender: FDA-Public Use
  Company Number: None

PATIENT
  Age: 72 Year
  Sex: Female
  Weight: 53.5 kg

DRUGS (8)
  1. ANCEF [Suspect]
     Indication: ANTIBIOTIC PROPHYLAXIS
     Dosage: 1 GM Q8H IV
     Route: 042
     Dates: start: 20091021, end: 20091025
  2. DECADRON [Concomitant]
  3. DOCUSATE [Concomitant]
  4. LYRICA [Concomitant]
  5. METAMUCIL [Concomitant]
  6. MORPHINE [Concomitant]
  7. PERCOCET [Concomitant]
  8. GENTAMICIN [Concomitant]

REACTIONS (2)
  - ERYTHEMA [None]
  - URTICARIA [None]
